FAERS Safety Report 21861195 (Version 7)
Quarter: 2023Q2

REPORT INFORMATION
  Report Type: Report from Study
  Country: US (occurrence: US)
  Receive Date: 20230113
  Receipt Date: 20230612
  Transmission Date: 20230722
  Serious: Yes (Hospitalization, Other)
  Sender: FDA-Public Use
  Company Number: US-002147023-NVSC2023US004575

PATIENT
  Age: 67 Year
  Sex: Male
  Weight: 56.7 kg

DRUGS (12)
  1. GEMCITABINE HYDROCHLORIDE [Suspect]
     Active Substance: GEMCITABINE HYDROCHLORIDE
     Indication: Pancreatic carcinoma metastatic
     Dosage: 1000 MG/M2 (DAY 1, 8, 15 OF EVERY 28-DAY CYCLE)
     Route: 042
     Dates: start: 20221230
  2. CANAKINUMAB [Suspect]
     Active Substance: CANAKINUMAB
     Indication: Pancreatic carcinoma metastatic
     Dosage: 250 MG, DAY 1 OF EVERY 28-DAY CYCLE
     Route: 058
     Dates: start: 20221230
  3. SPARTALIZUMAB [Suspect]
     Active Substance: SPARTALIZUMAB
     Indication: Pancreatic carcinoma metastatic
     Dosage: 400 MG, INFUSION, DAY 1 OF EVERY 28-DAY CYCLE
     Route: 042
     Dates: start: 20221230
  4. TYLENOL [Concomitant]
     Active Substance: ACETAMINOPHEN
     Indication: Product used for unknown indication
     Dosage: UNK
     Route: 065
     Dates: start: 202212
  5. DULCOLAX NOS [Concomitant]
     Active Substance: BISACODYL OR DOCUSATE SODIUM
     Indication: Product used for unknown indication
     Dosage: UNK
     Route: 065
     Dates: start: 202212
  6. LEVOTHYROXINE [Concomitant]
     Active Substance: LEVOTHYROXINE
     Indication: Product used for unknown indication
     Dosage: UNK
     Route: 065
     Dates: start: 1993
  7. OXYCODONE [Concomitant]
     Active Substance: OXYCODONE
     Indication: Product used for unknown indication
     Dosage: UNK
     Route: 065
     Dates: start: 202212
  8. SENNA LEAF [Concomitant]
     Active Substance: SENNA LEAF
     Indication: Product used for unknown indication
     Dosage: UNK
     Route: 065
     Dates: start: 202212
  9. MIRALAX [Concomitant]
     Active Substance: POLYETHYLENE GLYCOL 3350
     Indication: Product used for unknown indication
     Dosage: UNK
     Route: 065
     Dates: start: 202212
  10. LACTULOSE [Concomitant]
     Active Substance: LACTULOSE
     Indication: Product used for unknown indication
     Dosage: UNK
     Route: 065
     Dates: start: 20221222
  11. BISACODYL [Concomitant]
     Active Substance: BISACODYL
     Indication: Product used for unknown indication
     Dosage: UNK
     Route: 065
     Dates: start: 202212
  12. FLEET ENEMA [Concomitant]
     Active Substance: SODIUM PHOSPHATE, DIBASIC\SODIUM PHOSPHATE, MONOBASIC
     Indication: Product used for unknown indication
     Dosage: UNK
     Route: 065
     Dates: start: 202212

REACTIONS (23)
  - Acute respiratory failure [Recovering/Resolving]
  - Pyrexia [Recovering/Resolving]
  - Dyspnoea [Unknown]
  - Disease progression [Unknown]
  - Ascites [Unknown]
  - Metastases to liver [Not Recovered/Not Resolved]
  - Hypoxia [Unknown]
  - Tachycardia [Unknown]
  - Weight decreased [Not Recovered/Not Resolved]
  - Blood sodium decreased [Unknown]
  - Blood phosphorus decreased [Unknown]
  - Leukocytosis [Unknown]
  - Blood lactic acid decreased [Unknown]
  - Lipase decreased [Unknown]
  - C-reactive protein increased [Unknown]
  - Red blood cell sedimentation rate increased [Unknown]
  - Pleural effusion [Unknown]
  - Atelectasis [Unknown]
  - Pulmonary mass [Unknown]
  - Haemoglobin decreased [Unknown]
  - Blood alkaline phosphatase increased [Unknown]
  - Fatigue [Not Recovered/Not Resolved]
  - Somnolence [Unknown]

NARRATIVE: CASE EVENT DATE: 20230101
